FAERS Safety Report 16238182 (Version 12)
Quarter: 2021Q4

REPORT INFORMATION
  Report Type: Spontaneous
  Country: US (occurrence: US)
  Receive Date: 20190425
  Receipt Date: 20211230
  Transmission Date: 20220303
  Serious: Yes (Other)
  Sender: FDA-Public Use
  Company Number: US-PFIZER INC-2019166535

PATIENT
  Age: 67 Year
  Sex: Female
  Weight: 70.76 kg

DRUGS (9)
  1. LYRICA [Suspect]
     Active Substance: PREGABALIN
     Indication: Multiple sclerosis
     Dosage: 150 MG, 3X/DAY
     Route: 048
     Dates: start: 2014
  2. LYRICA [Suspect]
     Active Substance: PREGABALIN
     Indication: Muscle spasms
     Dosage: 150 MG, 2X/DAY (ONE IN THE MORNING AND ONE IN THE EVENING)
     Route: 048
  3. LYRICA [Suspect]
     Active Substance: PREGABALIN
     Indication: Myalgia
     Dosage: 150 MG, DAILY
     Route: 048
  4. LYRICA [Suspect]
     Active Substance: PREGABALIN
     Dosage: UNK (LYRICA THAT SHE HAD BORROWED SOME )
  5. LYRICA [Suspect]
     Active Substance: PREGABALIN
     Dosage: 50 MG, DAILY (ONCE IN THE MORNING AND TWO IN THE EVENING)
     Route: 048
  6. AMPYRA [Concomitant]
     Active Substance: DALFAMPRIDINE
     Indication: Multiple sclerosis
     Dosage: UNK, 2X/DAY(DOSE UNKNOWN; TABLETS BY MOUTH TWICE A DAY, IN THE MORNING AND NIGHT)
     Route: 048
  7. AMPYRA [Concomitant]
     Active Substance: DALFAMPRIDINE
     Indication: Gait disturbance
  8. LISINOPRIL [Concomitant]
     Active Substance: LISINOPRIL
     Indication: Hypertension
     Dosage: UNK
  9. LIPITOR [Concomitant]
     Active Substance: ATORVASTATIN CALCIUM
     Indication: Blood cholesterol abnormal
     Dosage: UNK

REACTIONS (12)
  - Drug dependence [Unknown]
  - Off label use [Unknown]
  - Product use in unapproved indication [Unknown]
  - Product prescribing issue [Unknown]
  - Product dispensing issue [Unknown]
  - Intentional product use issue [Unknown]
  - Intentional product misuse [Unknown]
  - Burning sensation [Unknown]
  - Muscle twitching [Unknown]
  - Malaise [Unknown]
  - Pain in extremity [Unknown]
  - Insomnia [Unknown]
